FAERS Safety Report 9273508 (Version 1)
Quarter: 2013Q2

REPORT INFORMATION
  Report Type: Spontaneous
  Country: US (occurrence: US)
  Receive Date: 20130506
  Receipt Date: 20130506
  Transmission Date: 20140414
  Serious: Yes (Other)
  Sender: FDA-Public Use
  Company Number: US-BAYER-2013-053564

PATIENT
  Age: 28 Year
  Sex: Female

DRUGS (7)
  1. ACETYLSALICYLIC ACID({=100 MG) [Suspect]
     Dosage: 81 MG
  2. ENOXAPARIN [Concomitant]
     Indication: PROPHYLAXIS
     Dosage: DAILY DOSE 40 MG
     Route: 058
  3. ENOXAPARIN [Concomitant]
     Indication: PROPHYLAXIS
     Dosage: 60 MG, BID
  4. ENOXAPARIN [Concomitant]
     Indication: PROPHYLAXIS
     Dosage: DAILY DOSE 60 MG
     Route: 058
  5. VALACICLOVIR [Concomitant]
     Indication: ORAL HERPES
  6. OXYTOCIN [Concomitant]
     Indication: INDUCED LABOUR
  7. OXYTOCIN [Concomitant]
     Indication: HELLP SYNDROME

REACTIONS (3)
  - Exposure during pregnancy [None]
  - Thrombosis [Recovered/Resolved]
  - HELLP syndrome [None]
